FAERS Safety Report 4317491-7 (Version None)
Quarter: 2004Q1

REPORT INFORMATION
  Report Type: 
  Country: None (occurrence: None)
  Receive Date: 20040312
  Receipt Date: 20040303
  Transmission Date: 20041129
  Serious: Yes (Hospitalization, Other)
  Sender: FDA-Public Use
  Company Number: HQWYE514703MAR04

PATIENT
  Age: 58 Year
  Sex: Female

DRUGS (5)
  1. CORDARONE [Suspect]
     Indication: ARRHYTHMIA
     Dosage: ORAL
     Route: 048
     Dates: start: 20040117, end: 20040118
  2. PREVISCAN (FLUNINDIONE) [Concomitant]
  3. FLECAINIDE ACETATE [Concomitant]
  4. KARDEGIC (ACETYLSALICYLATE LYSINE) [Concomitant]
  5. SINTROM [Concomitant]

REACTIONS (1)
  - RASH PUSTULAR [None]
